FAERS Safety Report 7443226-5 (Version None)
Quarter: 2011Q2

REPORT INFORMATION
  Report Type: 
  Country: None (occurrence: None)
  Receive Date: 20110428
  Receipt Date: 20110419
  Transmission Date: 20111010
  Serious: Yes (Disabling)
  Sender: FDA-Public Use
  Company Number: B0714633A

PATIENT
  Sex: Female
  Weight: 43 kg

DRUGS (10)
  1. GRAN [Concomitant]
     Dates: start: 20060202, end: 20060207
  2. THIOTEPA [Suspect]
     Indication: STEM CELL TRANSPLANT
     Dosage: 150MGM2 PER DAY
     Dates: start: 20060116, end: 20060117
  3. KYTRIL [Concomitant]
     Dosage: 6MG PER DAY
     Dates: start: 20060208, end: 20060216
  4. LEPETAN [Concomitant]
     Dosage: .2MG PER DAY
     Dates: start: 20060124, end: 20060127
  5. DECADRON [Concomitant]
     Dosage: 8MG PER DAY
     Dates: start: 20060116, end: 20060125
  6. ALKERAN [Suspect]
     Dosage: 50MGM2 PER DAY
     Route: 042
     Dates: start: 20060123, end: 20060124
  7. ALKERAN [Suspect]
     Indication: STEM CELL TRANSPLANT
     Dosage: 50MGM2 PER DAY
     Route: 042
     Dates: start: 20060116, end: 20060117
  8. FUROSEMIDE [Concomitant]
     Dosage: 40MG PER DAY
     Dates: start: 20060116, end: 20060206
  9. THIOTEPA [Suspect]
     Dosage: 200MGM2 PER DAY
     Dates: start: 20060123, end: 20060124
  10. KYTRIL [Concomitant]
     Dosage: 6MG PER DAY
     Dates: start: 20060116, end: 20060127

REACTIONS (9)
  - ODYNOPHAGIA [None]
  - ABDOMINAL PAIN UPPER [None]
  - MUCOUS MEMBRANE DISORDER [None]
  - ABDOMINAL PAIN [None]
  - DIARRHOEA [None]
  - INFECTION [None]
  - C-REACTIVE PROTEIN INCREASED [None]
  - EPISTAXIS [None]
  - ENGRAFTMENT SYNDROME [None]
